FAERS Safety Report 14187386 (Version 1)
Quarter: 2017Q4

REPORT INFORMATION
  Report Type: Spontaneous
  Country: IL (occurrence: IL)
  Receive Date: 20171114
  Receipt Date: 20171114
  Transmission Date: 20180321
  Serious: Yes (Other)
  Sender: FDA-Public Use
  Company Number: IL-ASTRAZENECA-2017SF13002

PATIENT
  Age: 67 Year
  Sex: Female

DRUGS (11)
  1. LETROZOLE. [Concomitant]
     Active Substance: LETROZOLE
  2. PALBOCICLIB [Suspect]
     Active Substance: PALBOCICLIB
     Dosage: 100 MG
     Route: 048
  3. ZOLEDRONIC ACID [Concomitant]
     Active Substance: ZOLEDRONIC ACID
  4. CALCIUM [Concomitant]
     Active Substance: CALCIUM
  5. VITAMIN D [Concomitant]
     Active Substance: CHOLECALCIFEROL
  6. PALBOCICLIB [Suspect]
     Active Substance: PALBOCICLIB
     Dosage: 75 MG
     Route: 048
  7. PALBOCICLIB [Suspect]
     Active Substance: PALBOCICLIB
     Dosage: RESUMED 100 MG
     Route: 048
  8. FASLODEX [Suspect]
     Active Substance: FULVESTRANT
     Route: 030
  9. PALBOCICLIB [Suspect]
     Active Substance: PALBOCICLIB
     Dosage: 125 MG, CYCLIC (ONCE A DAY, 3 WEEKS ON, 1 WEEK OFF)
     Route: 048
     Dates: start: 201611
  10. FASLODEX [Suspect]
     Active Substance: FULVESTRANT
     Dosage: COMBINATION 125/DAY
     Route: 030
  11. PALBOCICLIB [Suspect]
     Active Substance: PALBOCICLIB
     Dosage: RESUMED 75 MG
     Route: 048

REACTIONS (16)
  - Neutropenia [Unknown]
  - Lung infiltration [Unknown]
  - Post herpetic neuralgia [Unknown]
  - Herpes zoster [Unknown]
  - Spinal osteoarthritis [Unknown]
  - Bone lesion [Unknown]
  - Rectal haemorrhage [Unknown]
  - Off label use [Unknown]
  - Product use issue [Unknown]
  - Radiation pneumonitis [Unknown]
  - Thrombocytopenia [Unknown]
  - Cough [Unknown]
  - Epistaxis [Unknown]
  - Leukopenia [Unknown]
  - Metastases to liver [Unknown]
  - Anaemia [Unknown]

NARRATIVE: CASE EVENT DATE: 2013
